FAERS Safety Report 6316017-6 (Version None)
Quarter: 2009Q3

REPORT INFORMATION
  Report Type: 
  Country: None (occurrence: None)
  Receive Date: 20090820
  Receipt Date: 20090819
  Transmission Date: 20100115
  Serious: Yes (Hospitalization)
  Sender: FDA-Public Use
  Company Number: CH-BRISTOL-MYERS SQUIBB COMPANY-14746374

PATIENT
  Sex: Female

DRUGS (2)
  1. ABILIFY [Suspect]
     Indication: PARANOIA
     Route: 048
  2. ABILIFY [Suspect]
     Indication: HALLUCINATION
     Route: 048

REACTIONS (1)
  - CONDITION AGGRAVATED [None]
